FAERS Safety Report 14267550 (Version 1)
Quarter: 2017Q4

REPORT INFORMATION
  Report Type: Spontaneous
  Country: US (occurrence: US)
  Receive Date: 20171210
  Receipt Date: 20171210
  Transmission Date: 20180321
  Serious: Yes (Death, Life-Threatening, Hospitalization)
  Sender: FDA-Public Use
  Company Number: None

PATIENT
  Sex: Male

DRUGS (1)
  1. AMIODARONE [Suspect]
     Active Substance: AMIODARONE
     Indication: ATRIAL FIBRILLATION
     Dates: start: 20100917, end: 20101025

REACTIONS (5)
  - Hepatic haemorrhage [None]
  - Liver contusion [None]
  - Pleural effusion [None]
  - Post procedural complication [None]
  - Cardio-respiratory arrest [None]

NARRATIVE: CASE EVENT DATE: 20100917
